FAERS Safety Report 9622260 (Version 2)
Quarter: 2013Q4

REPORT INFORMATION
  Report Type: Spontaneous
  Country: US (occurrence: None)
  Receive Date: 20131010
  Receipt Date: 20131030
  Transmission Date: 20140711
  Serious: Yes (Hospitalization)
  Sender: FDA-Public Use
  Company Number: ACO_38658_2013

PATIENT
  Age: 74 Year
  Sex: Female
  Weight: 61.2 kg

DRUGS (4)
  1. AMPYRA (DALFAMPRIDINE) TABLET, 10MG [Suspect]
     Indication: MULTIPLE SCLEROSIS
     Route: 048
     Dates: start: 20130828, end: 2013
  2. MIRALAX(MACROGOL) [Concomitant]
  3. BACLOFEN(BACLOFEN) [Concomitant]
  4. DANTRIUM(DANTROLENE SODIUM) [Concomitant]

REACTIONS (10)
  - Gastric ulcer [None]
  - Cystitis [None]
  - Arthropathy [None]
  - Vomiting [None]
  - Dizziness [None]
  - Nausea [None]
  - Constipation [None]
  - Inappropriate schedule of drug administration [None]
  - Headache [None]
  - Asthenia [None]
